FAERS Safety Report 6170913-1 (Version None)
Quarter: 2009Q2

REPORT INFORMATION
  Report Type: 
  Country: None (occurrence: None)
  Receive Date: 20090427
  Receipt Date: 20090416
  Transmission Date: 20091009
  Serious: Yes (Hospitalization)
  Sender: FDA-Public Use
  Company Number: 2009-00574

PATIENT
  Age: 74 Year
  Sex: Female

DRUGS (10)
  1. VELCADE [Suspect]
     Indication: MULTIPLE MYELOMA
     Dates: start: 20081001
  2. ALKERAN [Suspect]
     Indication: DRUG USE FOR UNKNOWN INDICATION
     Dates: start: 20081001
  3. DELTISON(PREDNISONE, CALCIUM PHOSPHATE, MAGNESIUM TRISILICATE) [Suspect]
     Indication: DRUG USE FOR UNKNOWN INDICATION
     Dates: start: 20081001
  4. VAGIFEM [Concomitant]
  5. OMEPRAZOLE [Concomitant]
  6. MOVICOL (SODIUM BICARBONATE, SODIUM CHLORIDE, MACROGOL, POTASSIUM CHLO [Concomitant]
  7. LEVOTHYROXINE SODIUM [Concomitant]
  8. ACETAMINOPHEN [Concomitant]
  9. BEHEPAN (CYANOCOBALAMIN) [Concomitant]
  10. MORPHINE [Concomitant]

REACTIONS (2)
  - AUTONOMIC NEUROPATHY [None]
  - POLYNEUROPATHY [None]
